FAERS Safety Report 24087784 (Version 2)
Quarter: 2024Q3

REPORT INFORMATION
  Report Type: Spontaneous
  Country: US (occurrence: US)
  Receive Date: 20240715
  Receipt Date: 20240802
  Transmission Date: 20241016
  Serious: Yes (Hospitalization, Disabling, Other)
  Sender: AMGEN
  Company Number: US-AMGEN-USASP2024136406

PATIENT
  Age: 69 Year
  Sex: Male
  Weight: 112.5 kg

DRUGS (45)
  1. TEPEZZA [Suspect]
     Active Substance: TEPROTUMUMAB-TRBW
     Indication: Endocrine ophthalmopathy
     Dosage: 1170 MILLIGRAM, Q3WK (FIRST INFUSION)
     Route: 042
     Dates: start: 20200630
  2. TEPEZZA [Suspect]
     Active Substance: TEPROTUMUMAB-TRBW
     Indication: Graves^ disease
     Dosage: 2224 MILLIGRAM, Q3WK (SECOND INFUSION)
     Route: 042
     Dates: start: 20200721
  3. TEPEZZA [Suspect]
     Active Substance: TEPROTUMUMAB-TRBW
     Dosage: 2224 MILLIGRAM, Q3WK (THIRD INFUSION)
     Route: 042
     Dates: start: 20200813
  4. TEPEZZA [Suspect]
     Active Substance: TEPROTUMUMAB-TRBW
     Dosage: 2000 MILLIGRAM, Q3WK (FOURTH INFUSION)
     Route: 042
     Dates: start: 20200903
  5. TEPEZZA [Suspect]
     Active Substance: TEPROTUMUMAB-TRBW
     Dosage: 2000 MILLIGRAM, Q3WK (FIFTH INFUSION)
     Route: 042
     Dates: start: 20200925
  6. TEPEZZA [Suspect]
     Active Substance: TEPROTUMUMAB-TRBW
     Dosage: 2000 MILLIGRAM, Q3WK (SIXTH INFUSION)
     Route: 042
     Dates: start: 20201016
  7. TEPEZZA [Suspect]
     Active Substance: TEPROTUMUMAB-TRBW
     Dosage: 2000 MILLIGRAM, Q3WK (SEVENTH INFUSION)
     Route: 042
     Dates: start: 20201106
  8. TEPEZZA [Suspect]
     Active Substance: TEPROTUMUMAB-TRBW
     Dosage: 2000 MILLIGRAM, Q3WK (EIGHTH INFUSION)
     Route: 042
     Dates: end: 20201127
  9. PREDNISONE [Suspect]
     Active Substance: PREDNISONE
     Indication: Product used for unknown indication
     Dosage: UNK
     Route: 065
     Dates: start: 20151204, end: 20160326
  10. PREDNISONE [Suspect]
     Active Substance: PREDNISONE
     Dosage: UNK
     Route: 065
     Dates: start: 20180115, end: 20180224
  11. PREDNISONE [Suspect]
     Active Substance: PREDNISONE
     Dosage: UNK
     Route: 065
     Dates: start: 201908, end: 201911
  12. CYCLOBENZAPRINE [Concomitant]
     Active Substance: CYCLOBENZAPRINE
     Dosage: 10 MILLIGRAM, QD
     Route: 048
  13. NORVASC [Concomitant]
     Active Substance: AMLODIPINE BESYLATE
     Dosage: 10 MILLIGRAM, QD
     Route: 048
  14. KLOR-CON M10 [Concomitant]
     Active Substance: POTASSIUM CHLORIDE
     Dosage: 10 MILLIEQUIVALENT, QD, CAPSULE, EXTENDED RELEASE
     Route: 048
  15. KLOR-CON M10 [Concomitant]
     Active Substance: POTASSIUM CHLORIDE
     Dosage: 8 MILLIEQUIVALENT, CR TABLET
  16. COREG [Concomitant]
     Active Substance: CARVEDILOL
     Dosage: 25 MILLIGRAM, BID
     Route: 048
  17. COZAAR [Concomitant]
     Active Substance: LOSARTAN POTASSIUM
     Dosage: 100 MILLIGRAM, QD
     Route: 048
  18. LEVOTHYROXINE [Concomitant]
     Active Substance: LEVOTHYROXINE\LEVOTHYROXINE SODIUM
     Dosage: 50 MILLIEQUIVALENT, QD (1 TAB DAILY EXCEPT FRIDAY, SATURADA Y, AND SUNDAY)
     Route: 048
  19. HYDRODIURIL [Concomitant]
     Active Substance: HYDROCHLOROTHIAZIDE
     Dosage: 25 MILLIGRAM, QD
     Route: 048
  20. APRESOLINE HYDROCHLORIDE [Concomitant]
     Active Substance: HYDRALAZINE HYDROCHLORIDE
     Dosage: 10 MILLIGRAM, BID
     Route: 048
  21. APRESOLINE HYDROCHLORIDE [Concomitant]
     Active Substance: HYDRALAZINE HYDROCHLORIDE
     Dosage: 50 MILLIGRAM, TID
     Route: 048
  22. LIPITOR [Concomitant]
     Active Substance: ATORVASTATIN CALCIUM
     Dosage: 20 MILLIGRAM, QD
     Route: 048
  23. PEPCID [Concomitant]
     Active Substance: FAMOTIDINE
     Indication: Endocrine ophthalmopathy
     Dosage: 40 MILLIGRAM, QD TABLET
     Route: 048
  24. PEPCID [Concomitant]
     Active Substance: FAMOTIDINE
     Dosage: 20 MILLIGRAM
     Route: 042
  25. VITAMINS [Concomitant]
     Active Substance: VITAMINS
     Indication: Endocrine ophthalmopathy
     Dosage: 1 CAP, QD
     Route: 048
  26. COLCRYS [Concomitant]
     Active Substance: COLCHICINE
     Dosage: 0.6 MILLIGRAM, QD
     Route: 048
  27. PRILOSEC [Concomitant]
     Active Substance: OMEPRAZOLE MAGNESIUM
     Dosage: 20 MILLIGRAM, QD
     Route: 048
  28. TEKTURNA [Concomitant]
     Active Substance: ALISKIREN HEMIFUMARATE
     Dosage: 150 MILLIGRAM, QD
     Route: 048
  29. TENORMIN [Concomitant]
     Active Substance: ATENOLOL
     Dosage: 25 MILLIGRAM
     Route: 048
  30. VOLTAREN [Concomitant]
     Active Substance: DICLOFENAC SODIUM
     Dosage: OPHTHALMIC SOLUTION ADMINISTER 1 DROP INTO AFFECTED EYE
  31. PRED FORTE [Concomitant]
     Active Substance: PREDNISOLONE ACETATE
     Dosage: UNK, OPHTHALMIC SUSPENSION ADMINISTER 1 DROP INTO AFFECTED EYE
  32. TETRAHYDROZOLINE HYDROCHLORIDE [Concomitant]
     Active Substance: TETRAHYDROZOLINE HYDROCHLORIDE
     Dosage: UNK, OPHTHALMIC SOLUTION ADMINISTERED INTO AFFECTED EYE(S)
  33. TOBRADEX [Concomitant]
     Active Substance: DEXAMETHASONE\TOBRAMYCIN
     Dosage: UNK, OPHTHALMIC OINTMENT APPLY TO AFFECTED EYE(S)
  34. DECADRON [Concomitant]
     Active Substance: DEXAMETHASONE
     Dosage: 4 MILLIGRAM, LIFLTEGRAST 5 % DROPPERETTE
     Route: 030
     Dates: start: 20201117, end: 20201217
  35. SUPREP BOWEL PREP [Concomitant]
     Active Substance: MAGNESIUM SULFATE\POTASSIUM SULFATE\SODIUM SULFATE
     Dosage: UNK UNK, QD AS DIRECTED (17 .5- 3.13-1.6 GRAM RECON SOLN TAKE 1 KIT)
     Route: 048
  36. SODIUM CHLORIDE [Concomitant]
     Active Substance: SODIUM CHLORIDE
     Indication: Endocrine ophthalmopathy
     Dosage: UNK FOR BOLUS ONLY
     Route: 042
  37. EPINEPHRINE [Concomitant]
     Active Substance: EPINEPHRINE
     Indication: Endocrine ophthalmopathy
     Dosage: 0.3 MILLIGRAM, AUVI-Q, ADRENACLICK, EPIPEN 2-PAK AUTO-INJECTOR
     Route: 030
  38. BENADRYL [Concomitant]
     Active Substance: DIPHENHYDRAMINE HYDROCHLORIDE
     Indication: Endocrine ophthalmopathy
     Dosage: 50 MILLIGRAM PER MILLILITRE
  39. SOLU-MEDROL [Concomitant]
     Active Substance: METHYLPREDNISOLONE SODIUM SUCCINATE
     Indication: Endocrine ophthalmopathy
     Dosage: 125 MILLIGRAM
  40. TYLENOL [Concomitant]
     Active Substance: ACETAMINOPHEN
     Indication: Endocrine ophthalmopathy
     Dosage: 975 MILLIGRAM
  41. ALBUTEROL [Concomitant]
     Active Substance: ALBUTEROL
     Indication: Endocrine ophthalmopathy
     Dosage: PROAIR HFA, PROVENTIL HFA, VENTOLIN HFA) 108 (90 BASE) MCG/ACT ORAL INHALER 1 PUFF
  42. OXYGEN [Concomitant]
     Active Substance: OXYGEN
     Indication: Endocrine ophthalmopathy
     Dosage: UNK
  43. CATAPRES [Concomitant]
     Active Substance: CLONIDINE HYDROCHLORIDE
     Dosage: 0.1 MILLIGRAM
  44. TORADOL [Concomitant]
     Active Substance: KETOROLAC TROMETHAMINE
     Dosage: 60 MG/2ML
  45. TEKTURNA HCT [Concomitant]
     Active Substance: ALISKIREN HEMIFUMARATE\HYDROCHLOROTHIAZIDE
     Dosage: 300-12.5 MG

REACTIONS (26)
  - Deafness permanent [Not Recovered/Not Resolved]
  - Endocrine ophthalmopathy [Unknown]
  - Graves^ disease [Unknown]
  - Chronic kidney disease [Unknown]
  - Knee arthroplasty [Unknown]
  - Unevaluable event [Unknown]
  - Cataract [Unknown]
  - Deafness neurosensory [Unknown]
  - Pain [Unknown]
  - Emotional distress [Unknown]
  - Anxiety [Unknown]
  - Impaired quality of life [Unknown]
  - Discomfort [Unknown]
  - Product use complaint [Unknown]
  - Impaired fasting glucose [Unknown]
  - Excessive cerumen production [Unknown]
  - Orbital decompression [Unknown]
  - Aspartate aminotransferase increased [Unknown]
  - Eyelid ptosis [Unknown]
  - Ectropion [Unknown]
  - Blood sodium increased [Unknown]
  - Carbon dioxide increased [Unknown]
  - Blood potassium decreased [Unknown]
  - Glycosylated haemoglobin increased [Unknown]
  - Tinnitus [Not Recovered/Not Resolved]
  - Blood glucose increased [Unknown]

NARRATIVE: CASE EVENT DATE: 20160901
